FAERS Safety Report 12353745 (Version 3)
Quarter: 2016Q2

REPORT INFORMATION
  Report Type: Report from Study
  Country: US (occurrence: US)
  Receive Date: 20160511
  Receipt Date: 20160606
  Transmission Date: 20160815
  Serious: Yes (Disabling)
  Sender: FDA-Public Use
  Company Number: US-GILEAD-2016-0210211

PATIENT
  Age: 47 Year
  Sex: Male
  Weight: 113 kg

DRUGS (12)
  1. EPINEPHRINE. [Concomitant]
     Active Substance: EPINEPHRINE
  2. ALBUTEROL                          /00139501/ [Concomitant]
     Active Substance: ALBUTEROL
  3. ALLEGRA [Concomitant]
     Active Substance: FEXOFENADINE HYDROCHLORIDE
  4. AMBRISENTAN [Suspect]
     Active Substance: AMBRISENTAN
     Indication: PULMONARY ARTERIAL HYPERTENSION
     Dosage: 5 MG, QD
     Route: 065
     Dates: start: 20160415
  5. HYDROCORT                          /00028602/ [Concomitant]
  6. LASIX [Concomitant]
     Active Substance: FUROSEMIDE
  7. CLARITIN [Concomitant]
     Active Substance: LORATADINE
  8. FOSINOPRIL [Concomitant]
     Active Substance: FOSINOPRIL
  9. QVAR [Concomitant]
     Active Substance: BECLOMETHASONE DIPROPIONATE
  10. HYDRALAZINE [Concomitant]
     Active Substance: HYDRALAZINE HYDROCHLORIDE
  11. POTASSIUM CHLORIDE. [Concomitant]
     Active Substance: POTASSIUM CHLORIDE
  12. SILDENAFIL. [Concomitant]
     Active Substance: SILDENAFIL

REACTIONS (8)
  - Cough [Unknown]
  - Upper-airway cough syndrome [Unknown]
  - Asthma [Unknown]
  - Hyperhidrosis [Recovered/Resolved]
  - Abdominal pain [Unknown]
  - Nasal congestion [Unknown]
  - Flushing [Recovered/Resolved]
  - Feeling hot [Recovered/Resolved]

NARRATIVE: CASE EVENT DATE: 20160419
